FAERS Safety Report 13840583 (Version 1)
Quarter: 2017Q3

REPORT INFORMATION
  Report Type: Report from Study
  Country: US (occurrence: US)
  Receive Date: 20170807
  Receipt Date: 20170807
  Transmission Date: 20171127
  Serious: Yes (Hospitalization)
  Sender: FDA-Public Use
  Company Number: US-VIFOR (INTERNATIONAL) INC.-VIT-2017-08045

PATIENT
  Age: 44 Year
  Sex: Male

DRUGS (2)
  1. VELTASSA [Suspect]
     Active Substance: PATIROMER
     Indication: HYPERKALAEMIA
     Route: 048
     Dates: start: 201701
  2. VELTASSA [Suspect]
     Active Substance: PATIROMER
     Indication: END STAGE RENAL DISEASE

REACTIONS (3)
  - Abdominal pain upper [Recovered/Resolved]
  - Drug dose omission [Recovered/Resolved]
  - Small intestinal resection [Recovered/Resolved]

NARRATIVE: CASE EVENT DATE: 2017
